FAERS Safety Report 7564839-6 (Version None)
Quarter: 2011Q2

REPORT INFORMATION
  Report Type: 
  Country: None (occurrence: None)
  Receive Date: 20110622
  Receipt Date: 20110207
  Transmission Date: 20111010
  Serious: Yes (Other)
  Sender: FDA-Public Use
  Company Number: US-MYLANLABS-2011S1000028

PATIENT
  Age: 71 Year
  Sex: Female

DRUGS (21)
  1. CLOZAPINE [Suspect]
     Route: 048
     Dates: end: 20110101
  2. SERTRALINE HYDROCHLORIDE [Concomitant]
     Route: 048
  3. ZETIA [Concomitant]
     Indication: HYPERLIPIDAEMIA
     Route: 048
  4. DERMACIN [Concomitant]
     Indication: DRY SKIN
     Dosage: DERMACIN CREAM
     Route: 061
  5. FUROSEMIDE [Concomitant]
  6. NITRO-DUR [Concomitant]
     Dosage: 0.4 MG PER HOUR.
     Route: 061
  7. OYSTER SHELL CALCI [Concomitant]
     Indication: OSTEOPENIA
     Route: 048
  8. NITROSTAT [Concomitant]
     Route: 060
  9. ACETAMINOPHEN [Concomitant]
  10. CAPEX /00081501/ [Concomitant]
     Indication: DERMATITIS
     Dosage: SHAMPOO
     Route: 061
  11. GUAIFENESIN DM [Concomitant]
     Indication: COUGH
     Route: 048
  12. LEVOTHYROXINE SODIUM [Concomitant]
     Dosage: TAKE 1 TABLET 6X/WEEK
  13. GEMFIBROZIL [Concomitant]
     Indication: HYPERLIPIDAEMIA
  14. CLOZAPINE [Suspect]
     Indication: SCHIZOAFFECTIVE DISORDER
     Route: 048
  15. METAMUCIL-2 [Concomitant]
     Indication: CONSTIPATION
     Dosage: TAKE  (2) 0.52GM CAPSULES BY MOUTH TID
     Route: 048
  16. CENTRUM [Concomitant]
     Route: 048
  17. VITAMIN D [Concomitant]
     Dosage: D-1000
  18. SERTRALINE HYDROCHLORIDE [Concomitant]
     Route: 048
  19. SIMVASTATIN [Concomitant]
     Route: 048
  20. DOCUSATE [Concomitant]
     Indication: CONSTIPATION
  21. POTASSIUM CHLORIDE [Concomitant]
     Indication: HYPOKALAEMIA
     Dosage: POTASSIUM CHLORIDE MICRO TAB ER

REACTIONS (3)
  - GRANULOCYTOPENIA [None]
  - LEUKOPENIA [None]
  - PNEUMONIA [None]
